FAERS Safety Report 8734081 (Version 2)
Quarter: 2016Q4

REPORT INFORMATION
  Report Type: Spontaneous
  Country: US (occurrence: US)
  Receive Date: 20120821
  Receipt Date: 20161219
  Transmission Date: 20170207
  Serious: Yes (Other)
  Sender: FDA-Public Use
  Company Number: US-ROCHE-1067736

PATIENT
  Age: 72 Year
  Sex: Male

DRUGS (1)
  1. ZELBORAF [Suspect]
     Active Substance: VEMURAFENIB
     Indication: METASTATIC MALIGNANT MELANOMA
     Route: 048
     Dates: start: 20120304

REACTIONS (6)
  - Fatigue [Unknown]
  - Rash erythematous [Recovered/Resolved]
  - Swelling face [Unknown]
  - Mass [Unknown]
  - Decreased appetite [Unknown]
  - Disease progression [Unknown]

NARRATIVE: CASE EVENT DATE: 20120405
